FAERS Safety Report 10236239 (Version 1)
Quarter: 2014Q1

REPORT INFORMATION
  Report Type: Spontaneous
  Country: US (occurrence: None)
  Receive Date: 20140306
  Receipt Date: 20140306
  Transmission Date: 20141002
  Serious: Yes (Other)
  Sender: FDA-Public Use
  Company Number: 163-21880-13032270

PATIENT
  Age: 66 Year
  Sex: Male

DRUGS (9)
  1. REVLIMID [Suspect]
     Indication: PLASMA CELL MYELOMA
     Route: 048
     Dates: start: 20100623
  2. ACYCLOVIR ( ACICLOVIR) (UNKNOWN) [Concomitant]
  3. CALCIUM CARBONATE ( CALCIUM CARBONATE) (UNKNOWN) [Concomitant]
  4. DEXAMETHASONE ( DEXAMETHASONE) (UNKNOWN) [Concomitant]
  5. ECOTRIN ( ACETYLSALICYLIC ACID) ( UNKNOWN) [Concomitant]
  6. PEPCID ( FAMOTIDINE) (UNKNOWN) [Concomitant]
  7. VELCADE ( BORTEZOMIB) (UNKNOWN) [Concomitant]
  8. VITAMIN D ( ERGOCALCIFEROL) ( UNKNOWN) [Concomitant]
  9. ZOMETA ( ZOLEDRONIC ACID) (UNKNOWN) [Concomitant]

REACTIONS (1)
  - Heart rate irregular [None]
